FAERS Safety Report 24025999 (Version 1)
Quarter: 2024Q2

REPORT INFORMATION
  Report Type: Spontaneous
  Country: US (occurrence: US)
  Receive Date: 20240628
  Receipt Date: 20240628
  Transmission Date: 20240716
  Serious: No
  Sender: FDA-Public Use
  Company Number: US-AUROBINDO-AUR-APL-2023-044911

PATIENT
  Age: 46 Year
  Sex: Male
  Weight: 113 kg

DRUGS (1)
  1. AZELASTINE HYDROCHLORIDE [Suspect]
     Active Substance: AZELASTINE HYDROCHLORIDE
     Indication: Hypersensitivity
     Dosage: UNK UNK, AS NECESSARY
     Route: 065

REACTIONS (5)
  - Product dose omission issue [Unknown]
  - Product delivery mechanism issue [Unknown]
  - Device breakage [Unknown]
  - Product container issue [Unknown]
  - Device issue [Unknown]
